FAERS Safety Report 9888162 (Version 1)
Quarter: 2014Q1

REPORT INFORMATION
  Report Type: Spontaneous
  Country: FR (occurrence: FR)
  Receive Date: 20140211
  Receipt Date: 20140211
  Transmission Date: 20141002
  Serious: Yes (Hospitalization, Other)
  Sender: FDA-Public Use
  Company Number: FR-WATSON-2014-02385

PATIENT
  Age: 42 Year
  Sex: Female

DRUGS (3)
  1. LEVOFLOXACINE [Suspect]
     Indication: LUNG DISORDER
     Dosage: 2 DF, DAILY
     Route: 048
     Dates: start: 20131205, end: 20131207
  2. PARACETAMOL ARROW [Concomitant]
     Indication: PRODUCT USED FOR UNKNOWN INDICATION
     Dosage: 3 DF, DAILY
     Route: 065
     Dates: start: 20131205, end: 20131207
  3. PREDNISOLONE [Concomitant]
     Indication: PRODUCT USED FOR UNKNOWN INDICATION
     Dosage: 60 MG, DAILY
     Route: 065
     Dates: start: 20131205

REACTIONS (1)
  - Hepatocellular injury [Recovering/Resolving]
